FAERS Safety Report 13676587 (Version 1)
Quarter: 2017Q2

REPORT INFORMATION
  Report Type: Spontaneous
  Country: US (occurrence: US)
  Receive Date: 20170622
  Receipt Date: 20170622
  Transmission Date: 20170830
  Serious: No
  Sender: FDA-Public Use
  Company Number: US-BRISTOL-MYERS SQUIBB COMPANY-BMS-2017-055398

PATIENT
  Age: 58 Year
  Sex: Female

DRUGS (1)
  1. ORENCIA [Suspect]
     Active Substance: ABATACEPT
     Indication: MALAISE
     Dosage: 125 MG, QWK
     Route: 058
     Dates: start: 20170120, end: 20170529

REACTIONS (2)
  - Product use in unapproved indication [Unknown]
  - Blister infected [Unknown]

NARRATIVE: CASE EVENT DATE: 20170201
